FAERS Safety Report 10048071 (Version 1)
Quarter: 2014Q1

REPORT INFORMATION
  Report Type: Spontaneous
  Country: US (occurrence: None)
  Receive Date: 20140306
  Receipt Date: 20140306
  Transmission Date: 20141002
  Serious: Yes (Hospitalization)
  Sender: FDA-Public Use
  Company Number: 163-21880-13054108

PATIENT
  Age: 89 Year
  Sex: Female

DRUGS (9)
  1. REVLIMID [Suspect]
     Indication: PLASMA CELL MYELOMA
     Dosage: 21 IN 21 D
     Route: 048
     Dates: start: 20130430
  2. ASPIRIN (ACETYLSALICYLIC ACID) [Concomitant]
  3. AUGMENTIN [Concomitant]
  4. CALCITROL (CALCITROL) [Concomitant]
  5. CALCIUM (CALCIUM) [Concomitant]
  6. CALTRATE (CALCIUM CARBONATE) [Concomitant]
  7. COLACE (DOCUSATE SODIUM) [Concomitant]
  8. DICLOFENAC SODIUM (DICLOFENAC SODIUM) [Concomitant]
  9. DIFLUCAN (FLUCOANZOLE) [Concomitant]

REACTIONS (1)
  - Rectal haemorrhage [None]
